FAERS Safety Report 5256416-7 (Version None)
Quarter: 2007Q1

REPORT INFORMATION
  Report Type: 
  Country: None (occurrence: None)
  Receive Date: 20070306
  Receipt Date: 20070219
  Transmission Date: 20070707
  Serious: Yes (Hospitalization)
  Sender: FDA-Public Use
  Company Number: US-AMGEN-STX210061

PATIENT
  Sex: Female

DRUGS (10)
  1. ENBREL [Suspect]
     Indication: RHEUMATOID ARTHRITIS
     Route: 058
     Dates: start: 20000601, end: 20060901
  2. PREDNISONE [Concomitant]
     Route: 048
  3. ESTRADIOL [Concomitant]
  4. POTASSIUM CHLORIDE [Concomitant]
  5. ZANTAC [Concomitant]
  6. VITAMIN D [Concomitant]
  7. CALCIUM [Concomitant]
  8. OMEPRAZOLE [Concomitant]
  9. DARVOCET-N 100 [Concomitant]
  10. AMBIEN [Concomitant]

REACTIONS (11)
  - BACK PAIN [None]
  - BACTERIAL INFECTION [None]
  - BRONCHITIS [None]
  - COSTOVERTEBRAL ANGLE TENDERNESS [None]
  - DEVICE RELATED INFECTION [None]
  - HALLUCINATION [None]
  - KNEE ARTHROPLASTY [None]
  - RHEUMATOID ARTHRITIS [None]
  - SEPSIS [None]
  - SINUSITIS [None]
  - SKIN LACERATION [None]
